FAERS Safety Report 4362985-1 (Version None)
Quarter: 2004Q2

REPORT INFORMATION
  Report Type: 
  Country: None (occurrence: None)
  Receive Date: 20040518
  Receipt Date: 20040506
  Transmission Date: 20050107
  Serious: No
  Sender: FDA-Public Use
  Company Number: 04P-087-0260610-00

PATIENT
  Age: 5 Year
  Sex: Female
  Weight: 17.5 kg

DRUGS (2)
  1. DEPAKENE [Suspect]
     Indication: CONVULSION
     Dosage: PER ORAL
     Route: 048
     Dates: start: 20030301, end: 20030413
  2. DEPAKENE [Suspect]
     Indication: CONVULSION
     Dosage: PER ORAL
     Route: 048
     Dates: end: 20030413

REACTIONS (6)
  - ACUTE RESPIRATORY FAILURE [None]
  - ANOREXIA [None]
  - BLOOD ELASTASE INCREASED [None]
  - DECREASED ACTIVITY [None]
  - PANCREATITIS ACUTE [None]
  - WEIGHT DECREASED [None]
